FAERS Safety Report 19644147 (Version 1)
Quarter: 2021Q3

REPORT INFORMATION
  Report Type: Spontaneous
  Country: FR (occurrence: FR)
  Receive Date: 20210731
  Receipt Date: 20210731
  Transmission Date: 20211014
  Serious: Yes (Hospitalization)
  Sender: FDA-Public Use
  Company Number: FR-AUROBINDO-AUR-APL-2021-032717

PATIENT
  Age: 71 Year
  Sex: Female
  Weight: 93 kg

DRUGS (6)
  1. LIPTRUZET [Concomitant]
     Active Substance: ATORVASTATIN CALCIUM\EZETIMIBE
     Indication: HYPERCHOLESTEROLAEMIA
     Dosage: 40 MILLIGRAM
     Route: 048
     Dates: start: 20210624
  2. DAFALGAN CODEINE [Concomitant]
     Active Substance: ACETAMINOPHEN\CODEINE PHOSPHATE
     Indication: SELF-MEDICATION
     Dosage: 3 GRAM
     Route: 030
     Dates: start: 20210617, end: 20210623
  3. LAMOTRIGINE. [Suspect]
     Active Substance: LAMOTRIGINE
     Indication: BIPOLAR DISORDER
     Dosage: 250 MILLIGRAM
     Route: 048
  4. CLOMIPRAMINE HYDROCHLORIDE. [Concomitant]
     Active Substance: CLOMIPRAMINE HYDROCHLORIDE
     Indication: BIPOLAR DISORDER
     Dosage: 150 MILLIGRAM
     Route: 048
  5. AUGMENTIN [Concomitant]
     Active Substance: AMOXICILLIN\CLAVULANATE POTASSIUM
     Indication: SELF-MEDICATION
     Dosage: 3 GRAM
     Route: 048
     Dates: start: 20210621
  6. OXAZEPAM. [Concomitant]
     Active Substance: OXAZEPAM
     Indication: BIPOLAR DISORDER
     Dosage: 50 MILLIGRAM
     Route: 048
     Dates: start: 20210624

REACTIONS (1)
  - Laryngeal ulceration [Recovering/Resolving]

NARRATIVE: CASE EVENT DATE: 20210623
